FAERS Safety Report 20627369 (Version 2)
Quarter: 2022Q2

REPORT INFORMATION
  Report Type: Spontaneous
  Country: US (occurrence: US)
  Receive Date: 20220323
  Receipt Date: 20220401
  Transmission Date: 20220721
  Serious: Yes (Other)
  Sender: FDA-Public Use
  Company Number: US-KOREA IPSEN Pharma-2022-07847

PATIENT
  Sex: Female

DRUGS (1)
  1. DYSPORT [Suspect]
     Active Substance: ABOBOTULINUMTOXINA
     Indication: Muscle spasticity
     Dosage: 600 IU
     Route: 065

REACTIONS (4)
  - Cyst [Unknown]
  - Streptococcal infection [Unknown]
  - Blood glucose decreased [Unknown]
  - Respiratory tract infection [Unknown]
